FAERS Safety Report 9175133 (Version 3)
Quarter: 2013Q4

REPORT INFORMATION
  Report Type: Report from Study
  Country: US (occurrence: US)
  Receive Date: 20130320
  Receipt Date: 20131126
  Transmission Date: 20140711
  Serious: Yes (Life-Threatening, Hospitalization, Other)
  Sender: FDA-Public Use
  Company Number: US-TEVA-392408USA

PATIENT
  Age: 73 Year
  Sex: Male
  Weight: 57 kg

DRUGS (11)
  1. FLUOROURACIL [Suspect]
     Indication: COLON CANCER
     Dosage: DAY 1 AND DAY 15
     Route: 040
     Dates: start: 20121212, end: 20130122
  2. FLUOROURACIL [Suspect]
     Dosage: DAY 1 AND DAY 15
     Route: 040
     Dates: start: 20121212
  3. FOLINIC ACID [Suspect]
     Indication: COLON CANCER
     Dosage: DAY 1 AND DAY 15
     Route: 040
     Dates: start: 20121212, end: 20130122
  4. OXALIPLATIN [Suspect]
     Indication: COLON CANCER
     Dosage: DAY 1 AND DAY 15
     Route: 042
     Dates: start: 20121212, end: 20130122
  5. TIVOZANIB [Suspect]
     Indication: COLON CANCER
     Dosage: UID/OD
     Route: 048
     Dates: start: 20121212, end: 20130122
  6. SALBUTAMOL [Concomitant]
     Dates: start: 20121224
  7. FENTANYL [Concomitant]
     Route: 062
     Dates: start: 201210
  8. MORPHINE SULFATE [Concomitant]
     Dates: start: 201210
  9. DOCUSATE SODIUM [Concomitant]
  10. MACROGOL [Concomitant]
  11. MEGESTROL ACETATE [Concomitant]

REACTIONS (1)
  - Respiratory failure [Recovered/Resolved]
